FAERS Safety Report 8134686-5 (Version None)
Quarter: 2012Q1

REPORT INFORMATION
  Report Type: 
  Country: None (occurrence: None)
  Receive Date: 20120214
  Receipt Date: 20120206
  Transmission Date: 20120608
  Serious: Yes (Death)
  Sender: FDA-Public Use
  Company Number: GB-TEVA-321433ISR

PATIENT
  Age: 53 Year
  Sex: Female

DRUGS (1)
  1. PREDNISOLONE [Suspect]
     Indication: EMPHYSEMA
     Route: 065

REACTIONS (2)
  - IMPAIRED HEALING [None]
  - INFECTIOUS PERITONITIS [None]
